FAERS Safety Report 8481922-1 (Version None)
Quarter: 2012Q3

REPORT INFORMATION
  Report Type: 
  Country: None (occurrence: None)
  Receive Date: 20120702
  Receipt Date: 20120620
  Transmission Date: 20120928
  Serious: Yes (Hospitalization)
  Sender: FDA-Public Use
  Company Number: PT-B.I. PHARMACEUTICALS,INC./RIDGEFIELD-2012-EU-03335PO

PATIENT
  Age: 80 Year
  Sex: Female

DRUGS (7)
  1. ANTI ARRHYTHMIC (UNSPECIFIED) [Suspect]
  2. ANTI ARRHYTHMIC (UNSPECIFIED) [Suspect]
     Indication: ARRHYTHMIA
  3. PRADAXA [Suspect]
     Indication: ATRIAL FIBRILLATION
  4. DIGOXIN [Suspect]
     Indication: ARRHYTHMIA
  5. PROPAFENONE HCL [Suspect]
     Indication: ARRHYTHMIA
  6. PRADAXA [Suspect]
     Indication: CEREBROVASCULAR ACCIDENT PROPHYLAXIS
     Dosage: 220 MG
     Dates: end: 20120618
  7. BETA BLOCKER (UNSPECIFIED) [Suspect]
     Indication: CARDIAC FAILURE

REACTIONS (5)
  - GASTROINTESTINAL HAEMORRHAGE [None]
  - ANAEMIA [None]
  - MELAENA [None]
  - URINARY TRACT INFECTION [None]
  - HAEMATURIA [None]
